FAERS Safety Report 7668562 (Version 3)
Quarter: 2014Q3

REPORT INFORMATION
  Report Type: Report from Study
  Country: US (occurrence: US)
  Receive Date: 20101115
  Receipt Date: 20140717
  Transmission Date: 20150326
  Serious: Yes (Hospitalization)
  Sender: FDA-Public Use
  Company Number: US-JNJFOC-20101101759

PATIENT
  Age: 23 Year
  Sex: Male
  Weight: 72.7 kg

DRUGS (3)
  1. ACETAMINOPHEN/DIPHENHYDRAMINE HCL [Suspect]
     Active Substance: ACETAMINOPHEN\DIPHENHYDRAMINE HYDROCHLORIDE
     Indication: SELF INJURIOUS BEHAVIOUR
     Route: 048
  2. ALCOHOL. [Suspect]
     Active Substance: ALCOHOL
     Indication: SLEEP DISORDER THERAPY
     Route: 048
  3. NODOZ [Suspect]
     Active Substance: CAFFEINE
     Indication: SLEEP DISORDER THERAPY
     Route: 048

REACTIONS (3)
  - Intentional overdose [Recovered/Resolved]
  - Tachycardia [Recovered/Resolved]
  - Somnolence [Recovered/Resolved]

NARRATIVE: CASE EVENT DATE: 20101025
